FAERS Safety Report 19578795 (Version 1)
Quarter: 2021Q3

REPORT INFORMATION
  Report Type: Spontaneous
  Country: GB (occurrence: GB)
  Receive Date: 20210720
  Receipt Date: 20210720
  Transmission Date: 20211014
  Serious: No
  Sender: FDA-Public Use
  Company Number: GB-JNJFOC-20210716319

PATIENT
  Sex: Female

DRUGS (3)
  1. DUROGESIC D?TRANS [Suspect]
     Active Substance: FENTANYL
     Indication: PRODUCT USED FOR UNKNOWN INDICATION
     Route: 062
  2. DUROGESIC D?TRANS [Suspect]
     Active Substance: FENTANYL
  3. DUROGESIC D?TRANS [Suspect]
     Active Substance: FENTANYL

REACTIONS (2)
  - Product adhesion issue [Unknown]
  - Breakthrough pain [Unknown]
